FAERS Safety Report 7136590-8 (Version None)
Quarter: 2010Q4

REPORT INFORMATION
  Report Type: 
  Country: None (occurrence: None)
  Receive Date: 20101206
  Receipt Date: 20101123
  Transmission Date: 20110411
  Serious: Yes (Other)
  Sender: FDA-Public Use
  Company Number: NL-PAR PHARMACEUTICAL, INC-2010SCPR002268

PATIENT

DRUGS (2)
  1. DEXAMETHASONE [Suspect]
     Indication: PRODUCT USED FOR UNKNOWN INDICATION
     Dosage: 5 MG, 4 DD
     Route: 065
  2. BUSPIRONE HCL [Concomitant]
     Indication: ATTENTION DEFICIT/HYPERACTIVITY DISORDER
     Dosage: 10 MG, 3DD
     Route: 065

REACTIONS (4)
  - CUSHING'S SYNDROME [None]
  - DRUG ABUSE [None]
  - DRUG DISPENSING ERROR [None]
  - LEUKOCYTOSIS [None]
